FAERS Safety Report 17280775 (Version 4)
Quarter: 2020Q3

REPORT INFORMATION
  Report Type: Report from Study
  Country: None (occurrence: NL)
  Receive Date: 20200117
  Receipt Date: 20200808
  Transmission Date: 20201102
  Serious: Yes (Hospitalization, Other)
  Sender: FDA-Public Use
  Company Number: NL-ABBVIE-19K-114-2916880-00

PATIENT
  Sex: Male
  Weight: 72 kg

DRUGS (4)
  1. DUODOPA [Suspect]
     Active Substance: CARBIDOPA\LEVODOPA
     Route: 050
  2. MACROGOL [Concomitant]
     Active Substance: POLYETHYLENE GLYCOLS
     Indication: ABNORMAL FAECES
  3. DUODOPA [Suspect]
     Active Substance: CARBIDOPA\LEVODOPA
     Indication: PRODUCT USED FOR UNKNOWN INDICATION
     Dosage: DAY PUMP: MD: 6.0 ML; CD: 6.6; ED: 3.0 NIGHT PUMP: CD: 3.7; ED: 3.0
     Route: 050
  4. DUODOPA [Suspect]
     Active Substance: CARBIDOPA\LEVODOPA
     Route: 050

REACTIONS (26)
  - Hospitalisation [Unknown]
  - Depressed mood [Not Recovered/Not Resolved]
  - Device alarm issue [Recovered/Resolved]
  - Apathy [Not Recovered/Not Resolved]
  - Weight increased [Recovered/Resolved]
  - On and off phenomenon [Not Recovered/Not Resolved]
  - Stoma site discharge [Recovered/Resolved]
  - Confusional state [Not Recovered/Not Resolved]
  - Hyperkinesia [Recovering/Resolving]
  - Inguinal hernia [Recovered/Resolved]
  - Mental impairment [Not Recovered/Not Resolved]
  - Stoma site inflammation [Recovered/Resolved]
  - Fibroma [Not Recovered/Not Resolved]
  - Device issue [Not Recovered/Not Resolved]
  - Dysgraphia [Not Recovered/Not Resolved]
  - Arthralgia [Not Recovered/Not Resolved]
  - Musculoskeletal stiffness [Not Recovered/Not Resolved]
  - Weight increased [Not Recovered/Not Resolved]
  - Dyspnoea [Not Recovered/Not Resolved]
  - Bradykinesia [Not Recovered/Not Resolved]
  - Daydreaming [Not Recovered/Not Resolved]
  - Dyskinesia [Recovering/Resolving]
  - Memory impairment [Not Recovered/Not Resolved]
  - Back pain [Not Recovered/Not Resolved]
  - Gait disturbance [Not Recovered/Not Resolved]
  - Muscle rigidity [Not Recovered/Not Resolved]
